FAERS Safety Report 7478201-8 (Version None)
Quarter: 2011Q2

REPORT INFORMATION
  Report Type: 
  Country: None (occurrence: None)
  Receive Date: 20110513
  Receipt Date: 20110502
  Transmission Date: 20111010
  Serious: Yes (Hospitalization)
  Sender: FDA-Public Use
  Company Number: PHHY2011EC39223

PATIENT
  Sex: Female

DRUGS (2)
  1. CALCIUM [Concomitant]
  2. DIOVAN [Suspect]
     Indication: HYPERTENSION
     Dosage: 1 DF, 80 MG, DAILY
     Route: 048
     Dates: start: 20050101

REACTIONS (3)
  - FALL [None]
  - COUGH [None]
  - FEMUR FRACTURE [None]
